FAERS Safety Report 9871418 (Version 3)
Quarter: 2014Q3

REPORT INFORMATION
  Report Type: Report from Study
  Country: BR (occurrence: BR)
  Receive Date: 20140205
  Receipt Date: 20140902
  Transmission Date: 20150326
  Serious: Yes (Hospitalization)
  Sender: FDA-Public Use
  Company Number: BR-US-EMD SERONO, INC.-7265957

PATIENT
  Age: 23 Year
  Sex: Male

DRUGS (3)
  1. REBIF [Suspect]
     Active Substance: INTERFERON BETA-1A
     Dates: start: 201405
  2. PARACETAMOL [Concomitant]
     Active Substance: ACETAMINOPHEN
     Indication: PRODUCT USED FOR UNKNOWN INDICATION
  3. REBIF [Suspect]
     Active Substance: INTERFERON BETA-1A
     Indication: MULTIPLE SCLEROSIS
     Dates: start: 20130919

REACTIONS (15)
  - Blood pressure decreased [Unknown]
  - Constipation [Recovering/Resolving]
  - Hordeolum [Unknown]
  - Anxiety [Unknown]
  - Panic disorder [Not Recovered/Not Resolved]
  - Fatigue [Recovering/Resolving]
  - Dysphagia [Not Recovered/Not Resolved]
  - Nervousness [Unknown]
  - Hypoaesthesia [Unknown]
  - Decreased immune responsiveness [Unknown]
  - Injection site erythema [Unknown]
  - Dyspnoea [Unknown]
  - Swelling [Recovering/Resolving]
  - Stress [Recovering/Resolving]
  - Herpes virus infection [Unknown]

NARRATIVE: CASE EVENT DATE: 201406
